FAERS Safety Report 17945631 (Version 2)
Quarter: 2020Q3

REPORT INFORMATION
  Report Type: Spontaneous
  Country: US (occurrence: US)
  Receive Date: 20200625
  Receipt Date: 20200709
  Transmission Date: 20201103
  Serious: Yes (Other)
  Sender: FDA-Public Use
  Company Number: US-AMERICAN REGENT INC-2020001280

PATIENT
  Sex: Female
  Weight: 3.51 kg

DRUGS (7)
  1. SODIUM PHENYLACETATE [Concomitant]
     Active Substance: SODIUM PHENYLACETATE
     Indication: HYPERAMMONAEMIA
     Dosage: UNK
     Route: 065
  2. DOPAMINE HCL INJECTION, USP (1305?25) [Suspect]
     Active Substance: DOPAMINE HYDROCHLORIDE
     Indication: HYPOTENSION
     Dosage: UNK
     Route: 065
  3. FAT EMULSION NOS [Concomitant]
     Active Substance: EGG PHOSPHOLIPIDS\SAFFLOWER OIL\SOYBEAN OIL
     Indication: HYPERAMMONAEMIA
     Dosage: UNK
     Route: 065
  4. ARGININE [Concomitant]
     Active Substance: ARGININE
     Indication: HYPERAMMONAEMIA
     Dosage: UNK
     Route: 042
  5. SODIUM BENZOATE [Concomitant]
     Active Substance: SODIUM BENZOATE
     Indication: HYPERAMMONAEMIA
     Dosage: UNK
     Route: 065
  6. AMPICILLIN [Concomitant]
     Active Substance: AMPICILLIN
     Indication: SEPSIS
     Dosage: UNK
     Route: 042
  7. GENTAMICIN. [Concomitant]
     Active Substance: GENTAMICIN
     Indication: SEPSIS
     Dosage: UNK
     Route: 042

REACTIONS (3)
  - Drug ineffective [Unknown]
  - Hypotension [Unknown]
  - Product use issue [Unknown]
